FAERS Safety Report 6425990-7 (Version None)
Quarter: 2009Q4

REPORT INFORMATION
  Report Type: 
  Country: None (occurrence: None)
  Receive Date: 20091103
  Receipt Date: 20091021
  Transmission Date: 20100525
  Serious: Yes (Other)
  Sender: FDA-Public Use
  Company Number: PHHY2009JP45964

PATIENT

DRUGS (1)
  1. GLEEVEC [Suspect]
     Indication: CHRONIC MYELOID LEUKAEMIA
     Dosage: UNK
     Route: 048

REACTIONS (6)
  - COLONIC STENOSIS [None]
  - LOWER GASTROINTESTINAL HAEMORRHAGE [None]
  - RECTAL STENOSIS [None]
  - RECTAL ULCER [None]
  - STOMA CARE [None]
  - UPPER GASTROINTESTINAL HAEMORRHAGE [None]
